FAERS Safety Report 6759017-4 (Version None)
Quarter: 2010Q2

REPORT INFORMATION
  Report Type: 
  Country: None (occurrence: None)
  Receive Date: 20100602
  Receipt Date: 20100527
  Transmission Date: 20101027
  Serious: Yes (Hospitalization, Other)
  Sender: FDA-Public Use
  Company Number: 2009S1005573

PATIENT
  Age: 61 Year
  Sex: Female

DRUGS (1)
  1. EZ PREP KIT [Suspect]
     Indication: COLONOSCOPY
     Dosage: PO
     Route: 048
     Dates: start: 20040316, end: 20040316

REACTIONS (2)
  - HAEMODIALYSIS [None]
  - RENAL FAILURE [None]
